FAERS Safety Report 5516009-0 (Version None)
Quarter: 2007Q4

REPORT INFORMATION
  Report Type: 
  Country: None (occurrence: None)
  Receive Date: 20071114
  Receipt Date: 20061114
  Transmission Date: 20080405
  Serious: No
  Sender: FDA-Public Use
  Company Number: A0627246A

PATIENT
  Age: 46 Year

DRUGS (5)
  1. COMMIT [Suspect]
  2. COMMIT [Suspect]
  3. NICODERM CQ [Suspect]
  4. NICODERM CQ [Suspect]
  5. NICODERM CQ [Suspect]

REACTIONS (2)
  - SOMNOLENCE [None]
  - WEIGHT INCREASED [None]
